FAERS Safety Report 14543126 (Version 1)
Quarter: 2018Q1

REPORT INFORMATION
  Report Type: Spontaneous
  Country: US (occurrence: US)
  Receive Date: 20180216
  Receipt Date: 20180216
  Transmission Date: 20180509
  Serious: No
  Sender: FDA-Public Use
  Company Number: US-009507513-1801USA013504

PATIENT
  Age: 69 Year
  Sex: Female
  Weight: 49.43 kg

DRUGS (2)
  1. ZOLPIDEM [Concomitant]
     Active Substance: ZOLPIDEM\ZOLPIDEM TARTRATE
  2. BELSOMRA [Suspect]
     Active Substance: SUVOREXANT
     Indication: INSOMNIA
     Dosage: 10 MG, QPM (30 MINUTES BEFORE BEDTIME)
     Route: 048
     Dates: start: 20180125, end: 20180126

REACTIONS (3)
  - Fatigue [Unknown]
  - Cough [Unknown]
  - Drug ineffective [Unknown]

NARRATIVE: CASE EVENT DATE: 20180125
